FAERS Safety Report 10269386 (Version 2)
Quarter: 2014Q4

REPORT INFORMATION
  Report Type: Spontaneous
  Country: US (occurrence: US)
  Receive Date: 20140701
  Receipt Date: 20141107
  Transmission Date: 20150528
  Serious: Yes (Hospitalization, Other)
  Sender: FDA-Public Use
  Company Number: US-DRREDDYS-USA/USA/14/0041373

PATIENT
  Age: 15 Year
  Sex: Female

DRUGS (25)
  1. LORAZEPAM. [Suspect]
     Active Substance: LORAZEPAM
     Route: 065
  2. METHYLPHENIDATE [Suspect]
     Active Substance: METHYLPHENIDATE
     Indication: AGGRESSION
     Route: 065
  3. DEXTROAMPHETAMINE [Suspect]
     Active Substance: DEXTROAMPHETAMINE
     Indication: AGGRESSION
     Route: 065
  4. ZIPRASIDONE [Suspect]
     Active Substance: ZIPRASIDONE
     Indication: AGGRESSION
     Route: 065
  5. LORAZEPAM. [Suspect]
     Active Substance: LORAZEPAM
     Route: 065
  6. CLONAZEPAM. [Suspect]
     Active Substance: CLONAZEPAM
     Indication: AGGRESSION
     Route: 065
  7. GUANFACINE HYDROCHLORIDE. [Suspect]
     Active Substance: GUANFACINE HYDROCHLORIDE
     Indication: AGGRESSION
     Route: 065
  8. LORAZEPAM. [Suspect]
     Active Substance: LORAZEPAM
     Indication: AGGRESSION
     Route: 065
  9. CHLORPROMAZINE [Suspect]
     Active Substance: CHLORPROMAZINE
     Indication: AGGRESSION
     Route: 065
  10. LAMOTRIGINE TABLETS [Suspect]
     Active Substance: LAMOTRIGINE
     Indication: AGGRESSION
     Route: 065
  11. QUETIAPINE FUMARATE TABLETS [Suspect]
     Active Substance: QUETIAPINE FUMARATE
     Indication: AGGRESSION
     Route: 065
  12. MIDAZOLAM [Suspect]
     Active Substance: MIDAZOLAM\MIDAZOLAM HYDROCHLORIDE
     Indication: AGGRESSION
     Route: 065
  13. TOPIRAMATE. [Suspect]
     Active Substance: TOPIRAMATE
     Indication: AGGRESSION
     Route: 065
  14. CLONIDINE. [Suspect]
     Active Substance: CLONIDINE
     Indication: AGGRESSION
     Route: 065
  15. CLOZAPINE. [Suspect]
     Active Substance: CLOZAPINE
     Indication: AGGRESSION
     Route: 065
  16. LITHIUM [Suspect]
     Active Substance: LITHIUM CARBONATE
     Indication: AGGRESSION
     Route: 065
  17. OXCARBAZEPINE. [Suspect]
     Active Substance: OXCARBAZEPINE
     Indication: AGGRESSION
     Route: 065
  18. TRAZODONE [Suspect]
     Active Substance: TRAZODONE HYDROCHLORIDE
     Indication: AGGRESSION
     Route: 065
  19. HALOPERIDOL. [Suspect]
     Active Substance: HALOPERIDOL
     Indication: AGGRESSION
     Route: 065
  20. VALPROIC ACID. [Suspect]
     Active Substance: VALPROIC ACID
     Indication: AGGRESSION
     Route: 065
  21. PAROXETINE [Suspect]
     Active Substance: PAROXETINE\PAROXETINE HYDROCHLORIDE
     Indication: AGGRESSION
     Route: 065
  22. SERTRALINE HYDROCHLORIDE. [Suspect]
     Active Substance: SERTRALINE HYDROCHLORIDE
     Indication: AGGRESSION
     Route: 065
  23. RISPERIDONE. [Suspect]
     Active Substance: RISPERIDONE
     Indication: AGGRESSION
     Route: 065
  24. LITHIUM [Suspect]
     Active Substance: LITHIUM CARBONATE
     Route: 065
  25. ARIPIPRAZOLE. [Suspect]
     Active Substance: ARIPIPRAZOLE
     Indication: AGGRESSION
     Route: 065

REACTIONS (3)
  - Drug ineffective [Unknown]
  - Product quality issue [Unknown]
  - Aggression [Recovered/Resolved]
